FAERS Safety Report 4283723-7 (Version None)
Quarter: 2004Q1

REPORT INFORMATION
  Report Type: 
  Country: None (occurrence: None)
  Receive Date: 20040129
  Receipt Date: 20040129
  Transmission Date: 20041129
  Serious: Yes (Disabling)
  Sender: FDA-Public Use
  Company Number: None

PATIENT
  Sex: Female

DRUGS (4)
  1. SEPTOCAINE [Suspect]
     Indication: DENTAL TREATMENT
     Dates: start: 20031124
  2. SEPTOCAINE [Suspect]
     Indication: LOCAL ANAESTHESIA
     Dates: start: 20031124
  3. SYNTHROID [Concomitant]
  4. ADVIL [Concomitant]

REACTIONS (6)
  - AGEUSIA [None]
  - GLOSSODYNIA [None]
  - HYPOAESTHESIA [None]
  - HYPOAESTHESIA ORAL [None]
  - PAIN [None]
  - SPEECH DISORDER [None]
